FAERS Safety Report 25022172 (Version 3)
Quarter: 2025Q3

REPORT INFORMATION
  Report Type: Spontaneous
  Country: JP (occurrence: JP)
  Receive Date: 20250228
  Receipt Date: 20250803
  Transmission Date: 20251021
  Serious: Yes (Other)
  Sender: ALEXION PHARMACEUTICALS
  Company Number: JP-ASTRAZENECA-250016893_013120_P_1

PATIENT
  Age: 8 Decade
  Sex: Female

DRUGS (3)
  1. DURVALUMAB [Suspect]
     Active Substance: DURVALUMAB
     Indication: Bile duct cancer
  2. CISPLATIN [Suspect]
     Active Substance: CISPLATIN
     Indication: Bile duct cancer
     Route: 065
  3. GEMCITABINE HYDROCHLORIDE [Concomitant]
     Active Substance: GEMCITABINE HYDROCHLORIDE
     Indication: Bile duct cancer
     Route: 065

REACTIONS (6)
  - Hepatic enzyme increased [Unknown]
  - Inflammation [Unknown]
  - Immune-mediated renal disorder [Recovering/Resolving]
  - Cholangitis [Unknown]
  - Pyrexia [Unknown]
  - Liver abscess [Unknown]

NARRATIVE: CASE EVENT DATE: 20231001
